FAERS Safety Report 16360673 (Version 2)
Quarter: 2019Q2

REPORT INFORMATION
  Report Type: Spontaneous
  Country: JP (occurrence: JP)
  Receive Date: 20190528
  Receipt Date: 20190606
  Transmission Date: 20190711
  Serious: Yes (Other)
  Sender: FDA-Public Use
  Company Number: JP-TAKEDA-2019TJP011692

PATIENT
  Sex: Male

DRUGS (2)
  1. TAKEPRON INTRAVENOUS 30MG. [Suspect]
     Active Substance: LANSOPRAZOLE
     Indication: HAEMOSTASIS
  2. TAKEPRON INTRAVENOUS 30MG. [Suspect]
     Active Substance: LANSOPRAZOLE
     Indication: GASTRIC ULCER HAEMORRHAGE
     Dosage: 30 MILLIGRAM, BID
     Route: 040

REACTIONS (1)
  - Ulcer haemorrhage [Recovering/Resolving]
